FAERS Safety Report 18947315 (Version 3)
Quarter: 2021Q2

REPORT INFORMATION
  Report Type: Spontaneous
  Country: US (occurrence: US)
  Receive Date: 20210226
  Receipt Date: 20210427
  Transmission Date: 20210717
  Serious: Yes (Hospitalization, Other)
  Sender: FDA-Public Use
  Company Number: US-EMD SERONO-9208242

PATIENT
  Age: 59 Year
  Sex: Male

DRUGS (2)
  1. REBIF [Suspect]
     Active Substance: INTERFERON BETA-1A
     Indication: MULTIPLE SCLEROSIS
     Route: 058
     Dates: start: 20070417, end: 20190826
  2. REBIF [Suspect]
     Active Substance: INTERFERON BETA-1A
     Dosage: REBIJECT II
     Route: 058
     Dates: start: 20191213

REACTIONS (8)
  - Iatrogenic injury [Unknown]
  - Vocal cord disorder [Unknown]
  - Tracheostomy [Unknown]
  - Decubitus ulcer [Unknown]
  - Carotid endarterectomy [Unknown]
  - Incontinence [Unknown]
  - Illness [Unknown]
  - Feeding tube user [Unknown]

NARRATIVE: CASE EVENT DATE: 2020
